FAERS Safety Report 5468716-6 (Version None)
Quarter: 2007Q3

REPORT INFORMATION
  Report Type: 
  Country: None (occurrence: None)
  Receive Date: 20070926
  Receipt Date: 20070917
  Transmission Date: 20080115
  Serious: Yes (Hospitalization, Other)
  Sender: FDA-Public Use
  Company Number: US-PFIZER INC-2006109503

PATIENT
  Sex: Female
  Weight: 103.4 kg

DRUGS (10)
  1. BEXTRA [Suspect]
     Indication: PAIN
  2. VIOXX [Suspect]
     Indication: PAIN
     Route: 048
  3. ZOCOR [Concomitant]
     Indication: BLOOD CHOLESTEROL INCREASED
  4. LIPITOR [Concomitant]
     Indication: BLOOD CHOLESTEROL INCREASED
     Dates: start: 20010120, end: 20040210
  5. WARFARIN SODIUM [Concomitant]
     Indication: CEREBROVASCULAR ACCIDENT
     Dates: start: 20001030, end: 20041024
  6. ACETAMINOPHEN W/ CODEINE [Concomitant]
     Indication: PAIN
     Dates: start: 20010517, end: 20050606
  7. METOPROLOL [Concomitant]
     Indication: HYPERTENSION
     Dates: start: 20020630, end: 20031201
  8. METOPROLOL [Concomitant]
  9. ISOSORBIDE MONONITRATE [Concomitant]
     Indication: HYPERTENSION
     Dates: start: 20001127, end: 20040501
  10. NITROTAB [Concomitant]
     Indication: HYPERTENSION
     Dates: start: 20000712, end: 20040501

REACTIONS (3)
  - CARDIAC FAILURE CONGESTIVE [None]
  - CEREBROVASCULAR ACCIDENT [None]
  - MYOCARDIAL INFARCTION [None]
